FAERS Safety Report 12902112 (Version 4)
Quarter: 2017Q1

REPORT INFORMATION
  Report Type: Spontaneous
  Country: US (occurrence: US)
  Receive Date: 20161102
  Receipt Date: 20170104
  Transmission Date: 20170428
  Serious: Yes (Other)
  Sender: FDA-Public Use
  Company Number: US-PFIZER INC-2016506011

PATIENT
  Age: 61 Year
  Sex: Male
  Weight: 108.8 kg

DRUGS (13)
  1. VFEND [Suspect]
     Active Substance: VORICONAZOLE
     Indication: LEG AMPUTATION
  2. VANCOMYCIN [Concomitant]
     Active Substance: VANCOMYCIN
     Indication: TENDONITIS
     Dosage: UNK
     Route: 042
     Dates: start: 20161020, end: 20161107
  3. ULTRACET [Concomitant]
     Active Substance: ACETAMINOPHEN\TRAMADOL HYDROCHLORIDE
     Indication: PAIN
     Dosage: UNK
     Dates: start: 20161025
  4. VFEND [Suspect]
     Active Substance: VORICONAZOLE
     Indication: STAPHYLOCOCCAL INFECTION
     Dosage: 350 MG, 2X/DAY (Q12 HRS)
     Route: 048
  5. VFEND [Suspect]
     Active Substance: VORICONAZOLE
     Indication: TENDONITIS
  6. ECOTRIN [Concomitant]
     Active Substance: ASPIRIN
     Dosage: UNK
  7. ASA [Concomitant]
     Active Substance: ASPIRIN
     Dosage: UNK
  8. VFEND [Suspect]
     Active Substance: VORICONAZOLE
     Indication: OSTEOLYSIS
  9. VFEND [Suspect]
     Active Substance: VORICONAZOLE
     Indication: FUNGAL INFECTION
  10. VFEND [Suspect]
     Active Substance: VORICONAZOLE
     Indication: OSTEOMYELITIS
  11. VFEND [Suspect]
     Active Substance: VORICONAZOLE
     Indication: SCEDOSPORIUM INFECTION
     Dosage: 400 MG, 2X/DAY (400MG IN MORNING AND 400MG AT NIGHT EVERY 12 HOURS)
     Route: 048
     Dates: start: 20161024
  12. ASPIRIN /00002701/ [Concomitant]
     Active Substance: ASPIRIN
     Indication: ANTICOAGULANT THERAPY
     Dosage: 325 MG, 1X/DAY (ONCE IN MORNING)
     Dates: start: 20161026
  13. VFEND [Suspect]
     Active Substance: VORICONAZOLE
     Indication: CANDIDA INFECTION
     Dosage: 200 MG, 2X/DAY(CUT THE DOSE IN HALF TO 200MG IN MORNING AND 200MG AT NIGHT)
     Route: 048

REACTIONS (10)
  - Disorientation [Unknown]
  - Photopsia [Recovering/Resolving]
  - Feeling abnormal [Recovering/Resolving]
  - Euphoric mood [Recovering/Resolving]
  - Mental disorder [Unknown]
  - Visual impairment [Recovered/Resolved]
  - Visual brightness [Recovered/Resolved]
  - Malaise [Unknown]
  - Dizziness [Recovered/Resolved]
  - Hallucination [Recovered/Resolved]

NARRATIVE: CASE EVENT DATE: 201610
